FAERS Safety Report 16541925 (Version 3)
Quarter: 2019Q4

REPORT INFORMATION
  Report Type: Report from Study
  Country: GR (occurrence: GR)
  Receive Date: 20190708
  Receipt Date: 20191108
  Transmission Date: 20200122
  Serious: Yes (Life-Threatening, Hospitalization)
  Sender: FDA-Public Use
  Company Number: GR-EISAI MEDICAL RESEARCH-EC-2019-058762

PATIENT
  Age: 72 Year
  Sex: Male
  Weight: 87 kg

DRUGS (6)
  1. AVODART [Concomitant]
     Active Substance: DUTASTERIDE
  2. EVEROLIMUS. [Suspect]
     Active Substance: EVEROLIMUS
     Indication: RENAL CANCER
     Route: 048
     Dates: start: 20190620, end: 20190703
  3. DIAMICRON [Concomitant]
     Active Substance: GLICLAZIDE
  4. TRIATEC PLUS [Concomitant]
  5. VIPDOMET [Concomitant]
     Active Substance: ALOGLIPTIN BENZOATE\METFORMIN HYDROCHLORIDE
  6. LENVATINIB [Suspect]
     Active Substance: LENVATINIB
     Indication: RENAL CANCER
     Route: 048
     Dates: start: 20190620, end: 20190703

REACTIONS (1)
  - Hyponatraemia [Recovering/Resolving]

NARRATIVE: CASE EVENT DATE: 20190704
